FAERS Safety Report 17502400 (Version 3)
Quarter: 2020Q4

REPORT INFORMATION
  Report Type: Other
  Country: US (occurrence: US)
  Receive Date: 20200305
  Receipt Date: 20201015
  Transmission Date: 20210113
  Serious: Yes (Other)
  Sender: FDA-Public Use
  Company Number: US-ROCHE-2323826

PATIENT
  Sex: Female
  Weight: 72.64 kg

DRUGS (22)
  1. NAPROXEN. [Concomitant]
     Active Substance: NAPROXEN
     Indication: HEADACHE
  2. NEURONTIN [Concomitant]
     Active Substance: GABAPENTIN
  3. NEURONTIN [Concomitant]
     Active Substance: GABAPENTIN
  4. VENLAFAXINE [Concomitant]
     Active Substance: VENLAFAXINE HYDROCHLORIDE
     Indication: NEURITIS
  5. NORCO [Concomitant]
     Active Substance: ACETAMINOPHEN\HYDROCODONE BITARTRATE
     Dosage: 7.5 MG -325 MG
  6. PREDNISOLONE. [Concomitant]
     Active Substance: PREDNISOLONE
  7. MEDROL [Concomitant]
     Active Substance: METHYLPREDNISOLONE
  8. BACTRIM DS [Concomitant]
     Active Substance: SULFAMETHOXAZOLE\TRIMETHOPRIM
     Dosage: 800 MG TO 160 MG
  9. FENTANYL. [Concomitant]
     Active Substance: FENTANYL
     Dosage: 25 MCG /HR
  10. OCREVUS [Suspect]
     Active Substance: OCRELIZUMAB
     Indication: SECONDARY PROGRESSIVE MULTIPLE SCLEROSIS
     Dosage: ONGOING; YES
     Route: 042
     Dates: start: 20180824
  11. OCREVUS [Suspect]
     Active Substance: OCRELIZUMAB
     Route: 042
     Dates: start: 20180911
  12. AMPYRA [Concomitant]
     Active Substance: DALFAMPRIDINE
  13. FOSAMAX [Concomitant]
     Active Substance: ALENDRONATE SODIUM
     Indication: SPINAL STENOSIS
     Dosage: ONGOING: YES
     Route: 048
  14. DALFAMPRIDINE. [Concomitant]
     Active Substance: DALFAMPRIDINE
     Indication: GAIT DISTURBANCE
     Dosage: ONGOING: YES
     Route: 048
  15. NAPROXEN. [Concomitant]
     Active Substance: NAPROXEN
     Indication: MYALGIA
     Dosage: ONGOING:YES
     Route: 048
  16. OCREVUS [Suspect]
     Active Substance: OCRELIZUMAB
     Dosage: 11/MAR/2019: FIRST FULL DOSE
     Route: 042
     Dates: start: 2018
  17. REQUIP [Concomitant]
     Active Substance: ROPINIROLE HYDROCHLORIDE
     Indication: RESTLESS LEGS SYNDROME
     Dosage: ONGOING YES
     Route: 048
  18. GABAPENTIN. [Concomitant]
     Active Substance: GABAPENTIN
     Indication: NEURALGIA
     Route: 048
  19. VENLAFAXINE [Concomitant]
     Active Substance: VENLAFAXINE HYDROCHLORIDE
     Indication: DEPRESSION
     Dosage: DOSE 225; ONGOING YES
     Route: 048
  20. MORPHINE [Concomitant]
     Active Substance: MORPHINE
     Dosage: 25 MG/ML INJECTION SOLUTION
  21. BACLOFEN. [Concomitant]
     Active Substance: BACLOFEN
  22. VENLAFAXINE [Concomitant]
     Active Substance: VENLAFAXINE HYDROCHLORIDE
     Indication: NEURALGIA

REACTIONS (30)
  - Fall [Unknown]
  - Carpal tunnel syndrome [Unknown]
  - Seizure [Unknown]
  - Herpes virus infection [Unknown]
  - Off label use [Unknown]
  - Complex regional pain syndrome [Unknown]
  - Pain [Unknown]
  - Affective disorder [Unknown]
  - Tremor [Unknown]
  - Intentional product use issue [Unknown]
  - Weight increased [Unknown]
  - Chest discomfort [Unknown]
  - Mental status changes [Unknown]
  - Urinary retention [Unknown]
  - Optic neuritis [Unknown]
  - Intervertebral disc degeneration [Unknown]
  - Neck pain [Unknown]
  - Vestibular disorder [Unknown]
  - Deafness unilateral [Unknown]
  - Back pain [Unknown]
  - Postoperative wound infection [Unknown]
  - Hyperglycaemia [Unknown]
  - Pain in extremity [Unknown]
  - Ataxia [Unknown]
  - Migraine without aura [Unknown]
  - Multiple sclerosis relapse [Recovered/Resolved]
  - Body height decreased [Unknown]
  - Upper limb fracture [Recovered/Resolved]
  - Hand fracture [Recovered/Resolved]
  - Paraesthesia [Unknown]

NARRATIVE: CASE EVENT DATE: 2019
